FAERS Safety Report 7215741-0 (Version None)
Quarter: 2011Q1

REPORT INFORMATION
  Report Type: 
  Country: None (occurrence: None)
  Receive Date: 20110104
  Receipt Date: 20110104
  Transmission Date: 20110831
  Serious: Yes (Other)
  Sender: FDA-Public Use
  Company Number: None

PATIENT
  Age: 89 Year
  Sex: Female
  Weight: 58.9676 kg

DRUGS (1)
  1. SCOPOLAMINE [Suspect]
     Indication: EYE INFLAMMATION
     Dosage: 1 DROP 2 TIMES A DAY OPHTHALMIC
     Route: 047
     Dates: start: 20101207, end: 20101213

REACTIONS (7)
  - CONFUSIONAL STATE [None]
  - MOOD ALTERED [None]
  - HALLUCINATIONS, MIXED [None]
  - FEAR [None]
  - INSOMNIA [None]
  - MEMORY IMPAIRMENT [None]
  - TREMOR [None]
